FAERS Safety Report 12100693 (Version 1)
Quarter: 2016Q1

REPORT INFORMATION
  Report Type: Spontaneous
  Country: US (occurrence: US)
  Receive Date: 20160222
  Receipt Date: 20160222
  Transmission Date: 20160526
  Serious: Yes (Hospitalization, Other)
  Sender: FDA-Public Use
  Company Number: US-GLAXOSMITHKLINE-US2016GSK010077

PATIENT
  Age: 20 Year
  Sex: Female

DRUGS (4)
  1. CHLORPHENIRAMINE. [Suspect]
     Active Substance: CHLORPHENIRAMINE
     Indication: PRODUCT USED FOR UNKNOWN INDICATION
  2. DEXTRORPHAN [Suspect]
     Active Substance: DEXTRORPHAN
     Indication: PRODUCT USED FOR UNKNOWN INDICATION
  3. DEXTROMETHORPHAN [Suspect]
     Active Substance: DEXTROMETHORPHAN
     Indication: PRODUCT USED FOR UNKNOWN INDICATION
  4. NICOTINE. [Suspect]
     Active Substance: NICOTINE
     Indication: PRODUCT USED FOR UNKNOWN INDICATION

REACTIONS (15)
  - Overdose [Unknown]
  - Toxicity to various agents [Unknown]
  - Hallucination, auditory [Unknown]
  - Pressure of speech [Unknown]
  - Mania [Recovered/Resolved]
  - Bipolar disorder [Recovered/Resolved]
  - Anxiety [Unknown]
  - Psychotic disorder [Unknown]
  - Delusion [Unknown]
  - Grandiosity [Unknown]
  - Aggression [Unknown]
  - Mood swings [None]
  - Cognitive disorder [Recovered/Resolved]
  - Agitation [Unknown]
  - Paranoia [Unknown]
